FAERS Safety Report 8301818-5 (Version None)
Quarter: 2012Q2

REPORT INFORMATION
  Report Type: 
  Country: None (occurrence: None)
  Receive Date: 20120420
  Receipt Date: 20120412
  Transmission Date: 20120825
  Serious: Yes (Other)
  Sender: FDA-Public Use
  Company Number: US-ABBOTT-12P-163-0925243-00

PATIENT
  Sex: Female

DRUGS (2)
  1. HUMIRA [Suspect]
     Indication: PSORIASIS
  2. ADVAIR DISKUS 100/50 [Concomitant]
     Indication: ASTHMA
     Dates: start: 20060101

REACTIONS (2)
  - DEAFNESS [None]
  - TINNITUS [None]
